FAERS Safety Report 17470849 (Version 1)
Quarter: 2020Q1

REPORT INFORMATION
  Report Type: Spontaneous
  Country: NL (occurrence: NL)
  Receive Date: 20200228
  Receipt Date: 20200228
  Transmission Date: 20200409
  Serious: Yes (Life-Threatening, Hospitalization)
  Sender: FDA-Public Use
  Company Number: NL-ROCHE-2558735

PATIENT
  Age: 82 Year
  Sex: Male

DRUGS (14)
  1. ALGELDRAAT [Concomitant]
     Dosage: SUSPENSIE, 40/20 MG/ML (MILLIGRAM PER MILLILITER)
     Route: 065
  2. FORMOTEROL [Concomitant]
     Active Substance: FORMOTEROL
     Dosage: INHALATION POWDER, 6 MICROGRAM PER DOSIS
     Route: 065
  3. RITUXIMAB. [Suspect]
     Active Substance: RITUXIMAB
     Indication: PEMPHIGOID
     Dosage: INFUSION, 1 MG/MG, ADMINISTERED ON 30/JUL/2019 AND 13/AUG/2019 PER INFUSION, 2X1000 MG
     Route: 042
     Dates: start: 20190730
  4. DEXAMETHASONE. [Concomitant]
     Active Substance: DEXAMETHASONE
     Dosage: 1DD1
     Route: 065
  5. ATORVASTATINE [ATORVASTATIN] [Concomitant]
     Active Substance: ATORVASTATIN
     Dosage: 1 DD 1
     Route: 065
  6. SALBUTAMOL [Concomitant]
     Active Substance: ALBUTEROL
     Dosage: 4 DD 1
     Route: 065
  7. PREDNISOLON [PREDNISOLONE] [Concomitant]
     Active Substance: PREDNISOLONE
     Dosage: TABLET, 20 MG (MILLIGRAM)
     Route: 065
  8. ENALAPRIL [Concomitant]
     Active Substance: ENALAPRIL
     Dosage: TABLET, 10 MG (MILLIGRAM)
     Route: 065
  9. PARACETAMOL [Concomitant]
     Active Substance: ACETAMINOPHEN
     Dosage: TABLET, 500 MG (MILLIGRAM)
     Route: 065
  10. MAGNESIUMHYDROXIDE [Concomitant]
     Dosage: KAUWTABLET, 724 MG (MILLIGRAM)
     Route: 065
  11. FOLIUMZUUR [Concomitant]
     Active Substance: FOLIC ACID
     Dosage: TABLET, 0,5 MG (MILLIGRAM)
     Route: 065
  12. HYDROCHLOORTHIAZIDE [Concomitant]
     Active Substance: HYDROCHLOROTHIAZIDE
     Route: 065
  13. HYALURONIC ACID [Concomitant]
     Active Substance: HYALURONIC ACID
     Dosage: EYE DROP, 0,15/0,15 MG/ML (MILLIGRAM PER MILLILITER)
     Route: 065
  14. BIMATOPROST;TIMOLOL [Concomitant]
     Active Substance: BIMATOPROST\TIMOLOL
     Dosage: EYE DROPS, 5/0,3 MG/ML (MILLIGRAM PER MILLILITER)
     Route: 065

REACTIONS (1)
  - Pulmonary embolism [Recovered/Resolved]

NARRATIVE: CASE EVENT DATE: 20191031
